FAERS Safety Report 18559987 (Version 1)
Quarter: 2020Q4

REPORT INFORMATION
  Report Type: Spontaneous
  Country: CO (occurrence: CO)
  Receive Date: 20201130
  Receipt Date: 20201130
  Transmission Date: 20210114
  Serious: Yes (Hospitalization)
  Sender: FDA-Public Use
  Company Number: CO-GE HEALTHCARE LIFE SCIENCES-2020CSU005972

PATIENT

DRUGS (5)
  1. TIROFIBAN [Concomitant]
     Active Substance: TIROFIBAN
     Indication: THROMBOSIS
  2. OMNIPAQUE [Suspect]
     Active Substance: IOHEXOL
     Indication: ANGIOPLASTY
     Dosage: 1200 MG, SINGLE
     Route: 013
     Dates: start: 20201110, end: 20201110
  3. OMNIPAQUE [Suspect]
     Active Substance: IOHEXOL
     Indication: STENT PLACEMENT
     Dosage: 900 UNK
     Route: 013
     Dates: start: 20201112, end: 20201112
  4. OMNIPAQUE [Suspect]
     Active Substance: IOHEXOL
     Indication: ACUTE CORONARY SYNDROME
  5. ACETYLSALICYLIC ACID [Concomitant]
     Active Substance: ASPIRIN
     Indication: ANTIPLATELET THERAPY
     Dosage: 100 MG, QD
     Route: 048
     Dates: start: 20201108

REACTIONS (3)
  - Pulmonary oedema [Recovering/Resolving]
  - Cardiogenic shock [Recovered/Resolved]
  - Bronchospasm [Recovering/Resolving]

NARRATIVE: CASE EVENT DATE: 20201110
